FAERS Safety Report 18146886 (Version 7)
Quarter: 2020Q4

REPORT INFORMATION
  Report Type: Spontaneous
  Country: US (occurrence: US)
  Receive Date: 20200813
  Receipt Date: 20201211
  Transmission Date: 20210113
  Serious: Yes (Other)
  Sender: FDA-Public Use
  Company Number: US-GLAXOSMITHKLINE-US2020AMR153912

PATIENT
  Age: 54 Year
  Sex: Female

DRUGS (5)
  1. ZEJULA [Suspect]
     Active Substance: NIRAPARIB
     Indication: OVARIAN CANCER
     Dosage: 200 MG, QD (SAMPLES FROM ANOTHER PHARMACY)
     Route: 065
     Dates: start: 20200617
  2. ZEJULA [Suspect]
     Active Substance: NIRAPARIB
     Dosage: 200 MG, QD
     Route: 065
     Dates: start: 20201116
  3. ZEJULA [Suspect]
     Active Substance: NIRAPARIB
     Dosage: 200 MG, QD
     Dates: start: 20201203
  4. KEYTRUDA [Suspect]
     Active Substance: PEMBROLIZUMAB
     Indication: PRODUCT USED FOR UNKNOWN INDICATION
     Dosage: UNK
     Route: 065
  5. ZEJULA [Suspect]
     Active Substance: NIRAPARIB
     Dosage: 200 MG, QD
     Route: 048
     Dates: start: 20200731

REACTIONS (17)
  - Fatigue [Not Recovered/Not Resolved]
  - Dysphonia [Unknown]
  - Tremor [Unknown]
  - Feeling abnormal [Unknown]
  - Product use complaint [Unknown]
  - Abdominal discomfort [Unknown]
  - Red blood cell count decreased [Not Recovered/Not Resolved]
  - Adverse drug reaction [Unknown]
  - Lymphoma [Not Recovered/Not Resolved]
  - Back injury [Unknown]
  - Nausea [Unknown]
  - Dyspnoea [Unknown]
  - Dry mouth [Unknown]
  - Haemoglobin decreased [Unknown]
  - Social problem [Unknown]
  - Back pain [Unknown]
  - Thyroid hormones decreased [Unknown]

NARRATIVE: CASE EVENT DATE: 20200902
